FAERS Safety Report 5119138-9 (Version None)
Quarter: 2006Q3

REPORT INFORMATION
  Report Type: 
  Country: None (occurrence: None)
  Receive Date: 20060929
  Receipt Date: 20060929
  Transmission Date: 20061208
  Serious: Yes (Disabling, Other)
  Sender: FDA-Public Use
  Company Number: None

PATIENT
  Age: 71 Year
  Sex: Male
  Weight: 58.514 kg

DRUGS (6)
  1. VALSARTAN [Suspect]
     Indication: HYPERTENSION
     Dosage: 80 MG DAILY PO
     Route: 048
     Dates: start: 20051202, end: 20060103
  2. OMEPRAZOLE [Concomitant]
  3. SIMVASTATIN [Concomitant]
  4. VERAPAMIL [Concomitant]
  5. ASPIRIN [Concomitant]
  6. MULTI-VITAMIN [Concomitant]

REACTIONS (1)
  - HYPONATRAEMIA [None]
